FAERS Safety Report 5875705-6 (Version None)
Quarter: 2008Q3

REPORT INFORMATION
  Report Type: 
  Country: None (occurrence: None)
  Receive Date: 20080909
  Receipt Date: 20080903
  Transmission Date: 20090109
  Serious: Yes (Hospitalization)
  Sender: FDA-Public Use
  Company Number: JP-ABBOTT-08P-087-0474483-00

PATIENT
  Sex: Male
  Weight: 60 kg

DRUGS (5)
  1. NORVIR SOFT CAPSULES [Suspect]
     Indication: HIV INFECTION
     Dosage: 100 MG DAILY
     Route: 048
     Dates: start: 20070401
  2. ATAZANAVIR [Suspect]
     Indication: HIV INFECTION
     Dosage: 300 MG DAILY
     Route: 048
     Dates: start: 20070401
  3. EMTRICITABINE W/TENOFOVIR [Suspect]
     Indication: HIV INFECTION
     Dosage: 1 TAB DAILY
     Route: 048
     Dates: start: 20070401
  4. CERNITIN POLLEN EXTRACT [Concomitant]
     Indication: PROSTATITIS
     Route: 048
     Dates: start: 20070401, end: 20071121
  5. TAMSULOSIN HCL [Concomitant]
     Indication: PROSTATITIS
     Route: 048
     Dates: start: 20070401

REACTIONS (2)
  - ANAL CANCER [None]
  - GLUCOSE TOLERANCE IMPAIRED [None]
